FAERS Safety Report 9540179 (Version 4)
Quarter: 2013Q4

REPORT INFORMATION
  Report Type: Report from Study
  Country: CO (occurrence: CO)
  Receive Date: 20130920
  Receipt Date: 20131028
  Transmission Date: 20140711
  Serious: No
  Sender: FDA-Public Use
  Company Number: CO-B.I. PHARMACEUTICALS,INC./RIDGEFIELD-2013-RU-00914BP

PATIENT
  Age: 76 Year
  Sex: Male
  Weight: 91.2 kg

DRUGS (1)
  1. BI 1356 [Suspect]
     Indication: TYPE 2 DIABETES MELLITUS
     Dates: start: 20120613

REACTIONS (1)
  - Hepatic steatosis [Not Recovered/Not Resolved]
